FAERS Safety Report 17630247 (Version 1)
Quarter: 2020Q2

REPORT INFORMATION
  Report Type: Spontaneous
  Country: CN (occurrence: CN)
  Receive Date: 20200406
  Receipt Date: 20200406
  Transmission Date: 20200713
  Serious: Yes (Other)
  Sender: FDA-Public Use
  Company Number: CN-PFIZER INC-2020139770

PATIENT
  Age: 41 Year
  Sex: Male
  Weight: 67 kg

DRUGS (1)
  1. CYTOSAR [Suspect]
     Active Substance: CYTARABINE
     Indication: ACUTE MYELOID LEUKAEMIA
     Dosage: 3000 MG, 2X/DAY
     Route: 041
     Dates: start: 20200304, end: 20200306

REACTIONS (3)
  - Conjunctival hyperaemia [Recovering/Resolving]
  - Vomiting [Recovering/Resolving]
  - Conjunctival haemorrhage [Recovering/Resolving]

NARRATIVE: CASE EVENT DATE: 20200306
